FAERS Safety Report 15439751 (Version 2)
Quarter: 2018Q4

REPORT INFORMATION
  Report Type: Spontaneous
  Country: GB (occurrence: GB)
  Receive Date: 20180928
  Receipt Date: 20181031
  Transmission Date: 20190204
  Serious: Yes (Hospitalization)
  Sender: FDA-Public Use
  Company Number: GB-VERTEX PHARMACEUTICALS-2018-006939

PATIENT
  Age: 26 Year
  Sex: Female

DRUGS (9)
  1. ETODOLAC. [Concomitant]
     Active Substance: ETODOLAC
     Indication: ARTHROPATHY
     Dosage: 600 MG, QD
     Dates: start: 20110501, end: 20170818
  2. SYMBICORT [Concomitant]
     Active Substance: BUDESONIDE\FORMOTEROL FUMARATE DIHYDRATE
     Indication: CYSTIC FIBROSIS
     Dosage: 2 DOSAGE FORM, BID
     Dates: start: 19950813
  3. COCODAMOL [Concomitant]
     Active Substance: ACETAMINOPHEN\CODEINE PHOSPHATE
     Indication: ARTHROPATHY
     Dosage: 2 DOSAGE FORM, QD
     Dates: start: 20110501, end: 20170818
  4. KALYDECO [Suspect]
     Active Substance: IVACAFTOR
     Indication: CYSTIC FIBROSIS
     Dosage: 150 MG, BID
     Route: 048
     Dates: start: 20130305, end: 20170818
  5. AZITHROMYCIN ANHYDROUS. [Concomitant]
     Active Substance: AZITHROMYCIN ANHYDROUS
     Indication: CYSTIC FIBROSIS
     Dosage: 500 MG, M, W, F
     Route: 048
     Dates: start: 20170601
  6. CREON [Concomitant]
     Active Substance: PANCRELIPASE AMYLASE\PANCRELIPASE LIPASE\PANCRELIPASE PROTEASE
     Indication: CYSTIC FIBROSIS
     Dosage: UNK
     Dates: start: 19951013
  7. OMEPRAZOLE. [Concomitant]
     Active Substance: OMEPRAZOLE
     Indication: GASTROOESOPHAGEAL REFLUX DISEASE
     Dosage: 20 MG
     Dates: start: 20110501
  8. BRICANYL [Concomitant]
     Active Substance: TERBUTALINE SULFATE
     Indication: CYSTIC FIBROSIS
     Dosage: UNK, PRN
     Dates: start: 19950813
  9. KALYDECO [Suspect]
     Active Substance: IVACAFTOR
     Dosage: 150 MG, BID
     Route: 048
     Dates: start: 20180610

REACTIONS (1)
  - Cystic fibrosis respiratory infection suppression [Unknown]

NARRATIVE: CASE EVENT DATE: 20180320
